FAERS Safety Report 5448331-0 (Version None)
Quarter: 2007Q3

REPORT INFORMATION
  Report Type: 
  Country: None (occurrence: None)
  Receive Date: 20070911
  Receipt Date: 20070830
  Transmission Date: 20080115
  Serious: Yes (Hospitalization)
  Sender: FDA-Public Use
  Company Number: IT-JNJFOC-20070900232

PATIENT
  Age: 39 Year
  Sex: Female

DRUGS (2)
  1. RISPERIDONE [Suspect]
     Route: 042
  2. RISPERIDONE [Suspect]
     Indication: PSYCHOTIC DISORDER
     Route: 042

REACTIONS (2)
  - DRUG EXPOSURE DURING PREGNANCY [None]
  - PRE-ECLAMPSIA [None]
